FAERS Safety Report 17600039 (Version 8)
Quarter: 2022Q4

REPORT INFORMATION
  Report Type: Report from Study
  Country: JP (occurrence: JP)
  Receive Date: 20200330
  Receipt Date: 20221220
  Transmission Date: 20230113
  Serious: Yes (Other)
  Sender: FDA-Public Use
  Company Number: JP-SHIRE-JP202011378AA

PATIENT
  Age: 1 Year
  Sex: Male

DRUGS (57)
  1. VELAGLUCERASE ALFA [Suspect]
     Active Substance: VELAGLUCERASE ALFA
     Indication: Gaucher^s disease type II
     Dosage: 60 INTERNATIONAL UNIT/KILOGRAM, Q2WEEKS
     Route: 042
     Dates: start: 20190828
  2. INCREMIN [Concomitant]
     Indication: Product used for unknown indication
     Dosage: 4 MILLILITER
     Route: 048
     Dates: end: 20200730
  3. INCREMIN [Concomitant]
     Indication: Mineral supplementation
  4. VALPROATE SODIUM [Concomitant]
     Active Substance: VALPROATE SODIUM
     Indication: Product used for unknown indication
     Dosage: 1.4-5 MILLILITER
     Route: 048
  5. VALPROATE SODIUM [Concomitant]
     Active Substance: VALPROATE SODIUM
     Indication: Gaucher^s disease type II
     Dosage: 3-6 MILLILITER
     Route: 048
  6. VALPROATE SODIUM [Concomitant]
     Active Substance: VALPROATE SODIUM
     Dosage: 1.4 MILLILITER
     Route: 048
     Dates: end: 20190829
  7. VALPROATE SODIUM [Concomitant]
     Active Substance: VALPROATE SODIUM
     Dosage: 3 MILLILITER
     Route: 048
     Dates: start: 20190830, end: 20191022
  8. VALPROATE SODIUM [Concomitant]
     Active Substance: VALPROATE SODIUM
     Dosage: 4 MILLILITER
     Route: 048
     Dates: start: 20191023, end: 20191205
  9. VALPROATE SODIUM [Concomitant]
     Active Substance: VALPROATE SODIUM
     Dosage: 5 MILLILITER
     Route: 048
     Dates: start: 20191206, end: 20200116
  10. VALPROATE SODIUM [Concomitant]
     Active Substance: VALPROATE SODIUM
     Dosage: 4 MILLILITER
     Route: 048
     Dates: start: 20200117, end: 20200409
  11. VALPROATE SODIUM [Concomitant]
     Active Substance: VALPROATE SODIUM
     Dosage: 3 MILLILITER
     Route: 048
     Dates: start: 20200410, end: 20200423
  12. VALPROATE SODIUM [Concomitant]
     Active Substance: VALPROATE SODIUM
     Dosage: 4 MILLILITER
     Route: 048
     Dates: start: 20200424, end: 20200730
  13. VALPROATE SODIUM [Concomitant]
     Active Substance: VALPROATE SODIUM
     Dosage: 6 MILLILITER
     Route: 048
     Dates: start: 20200731
  14. VALPROATE SODIUM [Concomitant]
     Active Substance: VALPROATE SODIUM
     Dosage: 7 MILLILITER
     Route: 048
     Dates: start: 20201106, end: 20210310
  15. VALPROATE SODIUM [Concomitant]
     Active Substance: VALPROATE SODIUM
     Dosage: 8 MILLILITER
     Route: 048
     Dates: start: 20210311
  16. LEVOCARNITINE [Concomitant]
     Active Substance: LEVOCARNITINE
     Indication: Prophylaxis
     Dosage: 1.4 MILLILITER
     Route: 065
     Dates: end: 20191107
  17. LEVOCARNITINE [Concomitant]
     Active Substance: LEVOCARNITINE
     Indication: Product used for unknown indication
     Dosage: 5 MILLILITER
     Route: 065
  18. LEVOCARNITINE [Concomitant]
     Active Substance: LEVOCARNITINE
     Dosage: 1 DOSAGE FORM
     Route: 048
     Dates: start: 20191108
  19. FAMOTIDINE [Concomitant]
     Active Substance: FAMOTIDINE
     Indication: Product used for unknown indication
     Dosage: 0.1 GRAM
     Route: 048
     Dates: end: 20190901
  20. FAMOTIDINE [Concomitant]
     Active Substance: FAMOTIDINE
     Indication: Prophylaxis
  21. WAKOBITAL [Concomitant]
     Indication: Sedation
     Dosage: 25 MILLILITER
     Route: 054
     Dates: start: 20190831, end: 20190907
  22. CERCINE [Concomitant]
     Active Substance: DIAZEPAM
     Indication: Sedation
     Dosage: 7.2 MILLIGRAM
     Route: 048
     Dates: start: 20190831, end: 20190907
  23. TRICLOFOS SODIUM [Concomitant]
     Active Substance: TRICLOFOS SODIUM
     Indication: Prophylaxis
     Dosage: 5 MILLILITER
     Route: 048
     Dates: start: 20190902, end: 20191029
  24. TRICLOFOS SODIUM [Concomitant]
     Active Substance: TRICLOFOS SODIUM
     Indication: Gaucher^s disease type II
     Dosage: 8 MILLILITER
     Route: 048
     Dates: start: 20200515
  25. ACETAMINOPHEN [Concomitant]
     Active Substance: ACETAMINOPHEN
     Indication: Prophylaxis
     Dosage: 100 MILLIGRAM
     Route: 054
     Dates: start: 20190906, end: 20191029
  26. ACETAMINOPHEN [Concomitant]
     Active Substance: ACETAMINOPHEN
     Dosage: 100 MILLIGRAM
     Route: 054
     Dates: start: 20200514, end: 20200518
  27. DIAZEPAM [Concomitant]
     Active Substance: DIAZEPAM
     Indication: Product used for unknown indication
     Dosage: 4 MILLIGRAM
     Route: 054
     Dates: start: 20191206
  28. DIAZEPAM [Concomitant]
     Active Substance: DIAZEPAM
     Indication: Gaucher^s disease type II
  29. RHINOJET [Concomitant]
     Indication: Prophylaxis
     Dosage: 2 MILLILITER
     Route: 050
     Dates: start: 20191213, end: 20210120
  30. Glycyron [Concomitant]
     Indication: Product used for unknown indication
     Dosage: 1 DOSAGE FORM
     Route: 048
     Dates: start: 20200107
  31. RIVOTRIL [Concomitant]
     Active Substance: CLONAZEPAM
     Indication: Gaucher^s disease type II
     Dosage: 0.15 MILLIGRAM
     Route: 048
     Dates: start: 20200214, end: 20200618
  32. RIVOTRIL [Concomitant]
     Active Substance: CLONAZEPAM
     Dosage: 0.25 MILLIGRAM
     Route: 048
     Dates: start: 20200619, end: 20200924
  33. RIVOTRIL [Concomitant]
     Active Substance: CLONAZEPAM
     Dosage: 0.35 MILLIGRAM
     Route: 048
     Dates: start: 20200925, end: 20201217
  34. RIVOTRIL [Concomitant]
     Active Substance: CLONAZEPAM
     Dosage: 0.2 MILLIGRAM
     Route: 048
     Dates: start: 20201218, end: 20210211
  35. RIVOTRIL [Concomitant]
     Active Substance: CLONAZEPAM
     Dosage: 0.35 MILLIGRAM
     Route: 048
     Dates: start: 20210212
  36. ACYCLOVIR SODIUM [Concomitant]
     Active Substance: ACYCLOVIR SODIUM
     Indication: Prophylaxis
     Dosage: 105 MILLIGRAM
     Route: 042
     Dates: end: 20190829
  37. FUROSEMIDE [Concomitant]
     Active Substance: FUROSEMIDE
     Indication: Prophylaxis
     Dosage: 0.8 MILLILITER
     Route: 042
     Dates: start: 20190829, end: 20190829
  38. FENTANYL [Concomitant]
     Active Substance: FENTANYL
     Indication: Sedation
     Dosage: 0.03 MILLIGRAM
     Route: 042
     Dates: end: 20190903
  39. PIPERACILLIN SODIUM [Concomitant]
     Active Substance: PIPERACILLIN SODIUM
     Indication: Infection
     Dosage: 0.9 GRAM
     Route: 042
     Dates: start: 20190913, end: 20190917
  40. HYDROXYZINE HYDROCHLORIDE [Concomitant]
     Active Substance: HYDROXYZINE HYDROCHLORIDE
     Indication: Premedication
     Dosage: 10 MILLIGRAM
     Route: 042
     Dates: start: 20190828, end: 20190918
  41. SOLU-CORTEF [Concomitant]
     Active Substance: HYDROCORTISONE SODIUM SUCCINATE
     Indication: Premedication
     Dosage: 50 MILLIGRAM
     Route: 042
     Dates: start: 20190828, end: 20190918
  42. PROCATEROL HYDROCHLORIDE [Concomitant]
     Active Substance: PROCATEROL HYDROCHLORIDE
     Indication: Prophylaxis
     Dosage: 0.2 MILLILITER
     Route: 050
     Dates: start: 20191213
  43. CHLORAL HYDRATE [Concomitant]
     Active Substance: CHLORAL HYDRATE
     Indication: Product used for unknown indication
     Dosage: 500 MILLIGRAM
     Route: 054
     Dates: start: 20200514, end: 20200528
  44. CHLORAL HYDRATE [Concomitant]
     Active Substance: CHLORAL HYDRATE
     Indication: Gaucher^s disease type II
  45. DIETARY SUPPLEMENT\PROBIOTICS [Concomitant]
     Active Substance: DIETARY SUPPLEMENT\PROBIOTICS
     Indication: Prophylaxis
     Dosage: 1 GRAM
     Route: 048
     Dates: start: 20200702, end: 20200716
  46. THIOPENTAL [Concomitant]
     Active Substance: THIOPENTAL
     Indication: Sedation
     Dosage: 50 MILLIGRAM
     Route: 042
     Dates: start: 20200428, end: 20200501
  47. FOSPHENYTOIN SODIUM [Concomitant]
     Active Substance: FOSPHENYTOIN SODIUM
     Indication: Product used for unknown indication
     Dosage: 225 MILLIGRAM
     Route: 065
     Dates: start: 20200703, end: 20200703
  48. FOSPHENYTOIN SODIUM [Concomitant]
     Active Substance: FOSPHENYTOIN SODIUM
     Indication: Gaucher^s disease type II
  49. MIDAZOLAM HYDROCHLORIDE [Concomitant]
     Active Substance: MIDAZOLAM HYDROCHLORIDE
     Indication: Gaucher^s disease type II
     Dosage: 5 MILLIGRAM
     Dates: start: 20201218
  50. FYCOMPA [Concomitant]
     Active Substance: PERAMPANEL
     Indication: Gaucher^s disease type II
     Dosage: 0.5 MILLIGRAM
     Route: 048
     Dates: start: 20201120, end: 20201203
  51. FYCOMPA [Concomitant]
     Active Substance: PERAMPANEL
     Dosage: 0.25 MILLIGRAM
     Route: 048
     Dates: start: 20201204, end: 20201217
  52. FYCOMPA [Concomitant]
     Active Substance: PERAMPANEL
     Dosage: 0.35 MILLIGRAM
     Route: 048
     Dates: start: 20201218, end: 20210211
  53. FYCOMPA [Concomitant]
     Active Substance: PERAMPANEL
     Dosage: 0.5 MILLIGRAM
     Route: 048
     Dates: start: 20210212, end: 20210325
  54. TIZANIDINE [Concomitant]
     Active Substance: TIZANIDINE
     Indication: Gaucher^s disease type II
     Dosage: 0.5 MILLIGRAM
     Route: 048
     Dates: start: 20210311
  55. PHENOBARBITAL [Concomitant]
     Active Substance: PHENOBARBITAL
     Indication: Gaucher^s disease type II
     Dosage: 10 MILLIGRAM
     Route: 048
     Dates: start: 20210226, end: 20210421
  56. MIDAFRESA [Concomitant]
     Indication: Gaucher^s disease type II
     Dosage: 1 MILLILITER
     Route: 042
     Dates: start: 20200920, end: 20200920
  57. DIAZEPAM [Concomitant]
     Active Substance: DIAZEPAM
     Indication: Gaucher^s disease type II
     Dosage: 2.6 MILLILITER
     Dates: start: 20201030, end: 20201030

REACTIONS (5)
  - Femur fracture [Recovered/Resolved]
  - Pneumonia [Recovered/Resolved]
  - Pneumonia [Recovered/Resolved]
  - Pneumonia [Recovered/Resolved]
  - Hepatic enzyme increased [Recovered/Resolved]

NARRATIVE: CASE EVENT DATE: 20191023
